FAERS Safety Report 6903600-X (Version None)
Quarter: 2010Q3

REPORT INFORMATION
  Report Type: 
  Country: None (occurrence: None)
  Receive Date: 20100803
  Receipt Date: 20081027
  Transmission Date: 20110219
  Serious: No
  Sender: FDA-Public Use
  Company Number: US-PFIZER INC-2008090564

PATIENT
  Sex: Female
  Weight: 59.1 kg

DRUGS (1)
  1. LYRICA [Suspect]
     Indication: PAIN
     Dates: start: 20080801

REACTIONS (2)
  - MALAISE [None]
  - VOMITING [None]
